FAERS Safety Report 18201313 (Version 2)
Quarter: 2020Q3

REPORT INFORMATION
  Report Type: Spontaneous
  Country: US (occurrence: US)
  Receive Date: 20200827
  Receipt Date: 20200828
  Transmission Date: 20201103
  Serious: Yes (Death, Hospitalization, Other)
  Sender: FDA-Public Use
  Company Number: US-ASTRAZENECA-2020SF06415

PATIENT
  Age: 15659 Day
  Sex: Female
  Weight: 76.9 kg

DRUGS (3)
  1. FULVESTRANT. [Suspect]
     Active Substance: FULVESTRANT
     Dosage: EVERY 14TH DAY
     Route: 030
     Dates: start: 20200728, end: 20200812
  2. OMEPRAZOLE. [Suspect]
     Active Substance: OMEPRAZOLE
     Route: 048
  3. ISOVUE [Concomitant]
     Active Substance: IOPAMIDOL

REACTIONS (18)
  - Vomiting [Unknown]
  - Lactic acidosis [Unknown]
  - Cholelithiasis [Unknown]
  - Abdominal pain [Unknown]
  - Intra-abdominal fluid collection [Unknown]
  - Constipation [Unknown]
  - Calculus urinary [Unknown]
  - Hypophagia [Unknown]
  - SARS-CoV-2 test negative [Unknown]
  - Hypoxia [Unknown]
  - Malignant neoplasm progression [Unknown]
  - Cholecystitis [Unknown]
  - Metastases to liver [Unknown]
  - Nausea [Unknown]
  - Dyspnoea [Unknown]
  - Ascites [Unknown]
  - Death [Fatal]
  - Abdominal pain upper [Unknown]

NARRATIVE: CASE EVENT DATE: 20200817
